FAERS Safety Report 7595431-5 (Version None)
Quarter: 2011Q3

REPORT INFORMATION
  Report Type: 
  Country: None (occurrence: None)
  Receive Date: 20110707
  Receipt Date: 20110701
  Transmission Date: 20111222
  Serious: Yes (Other)
  Sender: FDA-Public Use
  Company Number: JP-ROCHE-768852

PATIENT
  Sex: Male
  Weight: 2.8 kg

DRUGS (2)
  1. OSELTAMIVIR [Suspect]
     Indication: INFLUENZA
     Route: 064
     Dates: start: 20091129, end: 20091203
  2. FLU VACCINATION [Concomitant]
     Dosage: DRUG : NEW FLU VACCINATION
     Dates: start: 20091116, end: 20091116

REACTIONS (2)
  - MATERNAL EXPOSURE DURING PREGNANCY [None]
  - SPEECH DISORDER DEVELOPMENTAL [None]
